FAERS Safety Report 7540741-0 (Version None)
Quarter: 2011Q2

REPORT INFORMATION
  Report Type: 
  Country: None (occurrence: None)
  Receive Date: 20110603
  Receipt Date: 20110519
  Transmission Date: 20111010
  Serious: No
  Sender: FDA-Public Use
  Company Number: LTI2011A00126

PATIENT
  Age: 66 Year
  Sex: Male

DRUGS (3)
  1. DIAMICRON (GLICLAZIDE) [Concomitant]
  2. AVANDAMET [Concomitant]
  3. COMPETACT (PIOGLITAZONE HYDROCHLORIDE, METFORMIN HYDROCHLORIDE) [Suspect]
     Indication: TYPE 2 DIABETES MELLITUS
     Dosage: 2 TAB. (1 TAB., 2 IN 1 D)
     Route: 048
     Dates: start: 20101001, end: 20110501

REACTIONS (2)
  - TRANSITIONAL CELL CARCINOMA [None]
  - BLADDER CANCER [None]
